FAERS Safety Report 6412455-1 (Version None)
Quarter: 2009Q4

REPORT INFORMATION
  Report Type: 
  Country: None (occurrence: None)
  Receive Date: 20091023
  Receipt Date: 20091019
  Transmission Date: 20100525
  Serious: Yes (Life-Threatening, Disabling, Other)
  Sender: FDA-Public Use
  Company Number: US-MERCK-0909USA02130

PATIENT
  Age: 7 Year
  Sex: Female
  Weight: 31 kg

DRUGS (7)
  1. SINGULAIR [Suspect]
     Indication: ASTHMA
     Route: 048
     Dates: start: 20090807, end: 20090902
  2. SINGULAIR [Suspect]
     Route: 048
     Dates: start: 20061201, end: 20070807
  3. SINGULAIR [Suspect]
     Indication: BRONCHIAL HYPERREACTIVITY
     Route: 048
     Dates: start: 20090807, end: 20090902
  4. SINGULAIR [Suspect]
     Route: 048
     Dates: start: 20061201, end: 20070807
  5. ADVAIR DISKUS 100/50 [Concomitant]
     Indication: BRONCHIAL HYPERREACTIVITY
     Dates: start: 20070501, end: 20090902
  6. VITAMINS (UNSPECIFIED) [Concomitant]
     Route: 065
  7. ALBUTEROL SULFATE [Concomitant]
     Dates: start: 20090101

REACTIONS (15)
  - AGGRESSION [None]
  - ANXIETY [None]
  - CHILDHOOD PSYCHOSIS [None]
  - DEPRESSION [None]
  - FEELING GUILTY [None]
  - FRUSTRATION [None]
  - HALLUCINATIONS, MIXED [None]
  - HOMICIDAL IDEATION [None]
  - MEMORY IMPAIRMENT [None]
  - NIGHTMARE [None]
  - SELF INJURIOUS BEHAVIOUR [None]
  - SELF-INJURIOUS IDEATION [None]
  - SOCIAL AVOIDANT BEHAVIOUR [None]
  - SUICIDAL IDEATION [None]
  - THINKING ABNORMAL [None]
